FAERS Safety Report 11323342 (Version 1)
Quarter: 2015Q3

REPORT INFORMATION
  Report Type: Spontaneous
  Country: US (occurrence: None)
  Receive Date: 20150729
  Receipt Date: 20150729
  Transmission Date: 20151125
  Serious: Yes (Hospitalization)
  Sender: FDA-Public Use
  Company Number: None

PATIENT
  Age: 48 Year
  Sex: Female
  Weight: 86.18 kg

DRUGS (4)
  1. AMLODIPINE [Concomitant]
     Active Substance: AMLODIPINE BESYLATE
  2. ESTRADIOL. [Suspect]
     Active Substance: ESTRADIOL
     Indication: HORMONE REPLACEMENT THERAPY
     Dosage: 1 PATCH, TWICE PER WEEK, APPLIED AS MEDICATED PATCH TO SKIN
     Dates: start: 20150618, end: 20150727
  3. METOPROLOL [Concomitant]
     Active Substance: METOPROLOL
  4. ESCITALOPRAM [Concomitant]
     Active Substance: ESCITALOPRAM OXALATE

REACTIONS (3)
  - Speech disorder [None]
  - Tremor [None]
  - Movement disorder [None]

NARRATIVE: CASE EVENT DATE: 20150725
